FAERS Safety Report 6465916-3 (Version None)
Quarter: 2009Q4

REPORT INFORMATION
  Report Type: 
  Country: None (occurrence: None)
  Receive Date: 20091202
  Receipt Date: 20091123
  Transmission Date: 20100525
  Serious: Yes (Life-Threatening, Hospitalization)
  Sender: FDA-Public Use
  Company Number: US-BIOGENIDEC-2009BI038100

PATIENT
  Age: 45 Year
  Sex: Female

DRUGS (9)
  1. TYSABRI [Suspect]
     Indication: MULTIPLE SCLEROSIS
     Route: 042
     Dates: start: 20090806
  2. HYDROCODONE [Concomitant]
     Indication: PAIN
     Dates: start: 20091001
  3. LYRICA [Concomitant]
     Indication: NEURALGIA
     Route: 048
  4. REQUIP [Concomitant]
     Route: 048
  5. PAXIL [Concomitant]
     Indication: DEPRESSION
     Route: 048
  6. OMEPRAZOLE [Concomitant]
     Indication: GASTROOESOPHAGEAL REFLUX DISEASE
     Route: 048
  7. RITALIN [Concomitant]
     Indication: FATIGUE
     Route: 048
  8. ULTRAM [Concomitant]
     Indication: PAIN
     Route: 048
  9. REMERON [Concomitant]
     Route: 048

REACTIONS (2)
  - FEMUR FRACTURE [None]
  - PULMONARY EMBOLISM [None]
